FAERS Safety Report 6555049-X (Version None)
Quarter: 2010Q1

REPORT INFORMATION
  Report Type: 
  Country: None (occurrence: None)
  Receive Date: 20100128
  Receipt Date: 20100122
  Transmission Date: 20100710
  Serious: Yes (Hospitalization, Other)
  Sender: FDA-Public Use
  Company Number: US-BIOGENIDEC-2005BI008025

PATIENT
  Age: 48 Year
  Sex: Female
  Weight: 127 kg

DRUGS (5)
  1. AVONEX [Suspect]
     Indication: MULTIPLE SCLEROSIS
     Route: 030
     Dates: start: 20010213, end: 20031105
  2. AVONEX [Suspect]
     Route: 030
     Dates: start: 20030101, end: 20050101
  3. AVONEX [Suspect]
     Route: 030
     Dates: start: 20050412
  4. AVONEX [Suspect]
     Route: 030
     Dates: start: 20060301
  5. AVONEX [Suspect]
     Route: 030
     Dates: start: 20090401

REACTIONS (3)
  - LUNG NEOPLASM MALIGNANT [None]
  - MOBILITY DECREASED [None]
  - NON-SMALL CELL LUNG CANCER [None]
